FAERS Safety Report 17196851 (Version 4)
Quarter: 2020Q1

REPORT INFORMATION
  Report Type: Spontaneous
  Country: IT (occurrence: IT)
  Receive Date: 20191224
  Receipt Date: 20200206
  Transmission Date: 20200409
  Serious: No
  Sender: FDA-Public Use
  Company Number: IT-ALLERGAN-1952729US

PATIENT
  Sex: Male

DRUGS (2)
  1. ESCITALOPRAM OXALATE - BP [Suspect]
     Active Substance: ESCITALOPRAM OXALATE
     Indication: ANXIETY
     Dosage: 5 DROPS IN THE EVENING
     Route: 048
     Dates: start: 201012
  2. ESCITALOPRAM OXALATE - BP [Suspect]
     Active Substance: ESCITALOPRAM OXALATE
     Indication: DEPRESSION

REACTIONS (5)
  - Euphoric mood [Unknown]
  - Mood swings [Unknown]
  - Ureterolithiasis [Recovered/Resolved]
  - Weight increased [Unknown]
  - Negative thoughts [Unknown]
